FAERS Safety Report 7737134-X (Version None)
Quarter: 2011Q3

REPORT INFORMATION
  Report Type: 
  Country: None (occurrence: None)
  Receive Date: 20110908
  Receipt Date: 20110826
  Transmission Date: 20111222
  Serious: Yes (Hospitalization)
  Sender: FDA-Public Use
  Company Number: DE-ROCHE-801009

PATIENT
  Sex: Male
  Weight: 112 kg

DRUGS (4)
  1. ACETAMINOPHEN [Concomitant]
     Dosage: AS REQUIRED
     Route: 048
  2. MCP [Concomitant]
     Indication: NAUSEA
     Dosage: AS REQUIRED
     Route: 048
  3. INTERFERON ALFA-2A [Suspect]
     Indication: METASTATIC RENAL CELL CARCINOMA
     Dosage: 2 CYCLES GIVEN
     Route: 058
     Dates: start: 20110711, end: 20110822
  4. BEVACIZUMAB [Concomitant]
     Indication: METASTATIC RENAL CELL CARCINOMA
     Dosage: TWO CYCLES GIVEN, LAST APPLICATION PRIOR TO THE EVENT ON 15-AUG-2011
     Route: 042
     Dates: start: 20110711

REACTIONS (4)
  - CIRCULATORY COLLAPSE [None]
  - DYSPNOEA EXERTIONAL [None]
  - ASTHENIA [None]
  - HAEMOGLOBIN DECREASED [None]
